FAERS Safety Report 5127340-5 (Version None)
Quarter: 2006Q4

REPORT INFORMATION
  Report Type: 
  Country: None (occurrence: None)
  Receive Date: 20061010
  Receipt Date: 20060913
  Transmission Date: 20070319
  Serious: Yes (Hospitalization)
  Sender: FDA-Public Use
  Company Number: 2006117551

PATIENT
  Age: 40 Year
  Sex: Male

DRUGS (1)
  1. HYDROCORTISONE SODIUM SUCCINATE [Suspect]
     Indication: BACK PAIN
     Dosage: 125 MG (TOTAL), EPIDURAL
     Route: 008
     Dates: start: 20050701, end: 20050701

REACTIONS (3)
  - PAIN IN EXTREMITY [None]
  - PARAPLEGIA [None]
  - POST PROCEDURAL COMPLICATION [None]
